FAERS Safety Report 8572086-4 (Version None)
Quarter: 2012Q3

REPORT INFORMATION
  Report Type: 
  Country: None (occurrence: None)
  Receive Date: 20120806
  Receipt Date: 20120803
  Transmission Date: 20120928
  Serious: No
  Sender: FDA-Public Use
  Company Number: PHHY2012IN059168

PATIENT
  Sex: Male

DRUGS (2)
  1. TASIGNA [Suspect]
     Indication: CHRONIC MYELOID LEUKAEMIA
     Dosage: 400 MG, BID
     Route: 048
     Dates: start: 20110725
  2. TASIGNA [Suspect]
     Dosage: UNK
     Route: 048

REACTIONS (2)
  - INCORRECT DOSE ADMINISTERED [None]
  - FEELING HOT [None]
